FAERS Safety Report 7445859-9 (Version None)
Quarter: 2011Q2

REPORT INFORMATION
  Report Type: 
  Country: None (occurrence: None)
  Receive Date: 20110429
  Receipt Date: 20110426
  Transmission Date: 20111010
  Serious: Yes (Other)
  Sender: FDA-Public Use
  Company Number: US-PFIZER INC-2011090791

PATIENT
  Sex: Female

DRUGS (1)
  1. GEODON [Suspect]
     Dosage: 20 MG, 2X/DAY
     Route: 048

REACTIONS (3)
  - WEIGHT INCREASED [None]
  - HYPERTENSION [None]
  - WITHDRAWAL SYNDROME [None]
